FAERS Safety Report 17259522 (Version 3)
Quarter: 2020Q1

REPORT INFORMATION
  Report Type: Report from Study
  Country: GE (occurrence: GE)
  Receive Date: 20200110
  Receipt Date: 20200323
  Transmission Date: 20200409
  Serious: Yes (Life-Threatening)
  Sender: FDA-Public Use
  Company Number: GE-REGENERON PHARMACEUTICALS, INC.-2019-48049

PATIENT

DRUGS (8)
  1. PACLITAXEL. [Suspect]
     Active Substance: PACLITAXEL
     Indication: LUNG SQUAMOUS CELL CARCINOMA STAGE IV
     Dosage: 200 MG/M2, Q3W
     Route: 042
     Dates: start: 20181225, end: 20190116
  2. CARBOPLATIN. [Suspect]
     Active Substance: CARBOPLATIN
     Indication: LUNG SQUAMOUS CELL CARCINOMA STAGE IV
     Dosage: AUC OF 5 OR 6 MG/ML/MINUTE IV, Q3W
     Route: 042
     Dates: start: 20181225, end: 20190116
  3. IPILIMUMAB [Suspect]
     Active Substance: IPILIMUMAB
     Indication: LUNG SQUAMOUS CELL CARCINOMA STAGE IV
     Dosage: 50 MG, Q6W UP TO 4 DOSES
     Route: 042
     Dates: start: 20181225, end: 20190430
  4. THYROZOL [Concomitant]
     Active Substance: METHIMAZOLE
     Dosage: 25 MG, QD
     Route: 048
     Dates: start: 20190425, end: 20190625
  5. CEMIPLIMAB [Suspect]
     Active Substance: CEMIPLIMAB
     Indication: LUNG SQUAMOUS CELL CARCINOMA STAGE IV
     Dosage: 350 MG, Q3W
     Route: 042
     Dates: start: 20181225, end: 20190430
  6. MEDROL [Concomitant]
     Active Substance: METHYLPREDNISOLONE
     Dosage: 4 MG, TID
     Route: 048
     Dates: start: 20190409, end: 20190424
  7. MEDROL [Concomitant]
     Active Substance: METHYLPREDNISOLONE
     Indication: HYPERTHYROIDISM
     Dosage: 4 MG, QD
     Route: 048
     Dates: start: 20190425, end: 20190515
  8. THYROZOL [Concomitant]
     Active Substance: METHIMAZOLE
     Indication: HYPERTHYROIDISM
     Dosage: 10 MG, TID
     Route: 048
     Dates: start: 20190409, end: 20190424

REACTIONS (2)
  - Alanine aminotransferase increased [Recovered/Resolved]
  - Aspartate aminotransferase increased [Recovered/Resolved]

NARRATIVE: CASE EVENT DATE: 20190521
